FAERS Safety Report 5936179-X (Version None)
Quarter: 2008Q4

REPORT INFORMATION
  Report Type: 
  Country: None (occurrence: None)
  Receive Date: 20081028
  Receipt Date: 20081007
  Transmission Date: 20090506
  Serious: Yes (Death)
  Sender: FDA-Public Use
  Company Number: 2008AL010658

PATIENT
  Age: 65 Year
  Sex: Male

DRUGS (1)
  1. FLUOXETINE [Suspect]
     Indication: DEPRESSION
     Dosage: 20 MG; PO
     Route: 048
     Dates: start: 20080312, end: 20080323

REACTIONS (11)
  - ANOREXIA [None]
  - COMPLETED SUICIDE [None]
  - DEPRESSION [None]
  - DISTURBANCE IN ATTENTION [None]
  - DIZZINESS [None]
  - HYPOTHYROIDISM [None]
  - LOSS OF LIBIDO [None]
  - POOR QUALITY SLEEP [None]
  - PRESYNCOPE [None]
  - TERMINAL INSOMNIA [None]
  - WEIGHT DECREASED [None]
